FAERS Safety Report 8058571-2 (Version None)
Quarter: 2012Q1

REPORT INFORMATION
  Report Type: 
  Country: None (occurrence: None)
  Receive Date: 20120120
  Receipt Date: 20120113
  Transmission Date: 20120608
  Serious: Yes (Other)
  Sender: FDA-Public Use
  Company Number: JP-PFIZER INC-2012010042

PATIENT
  Age: 75 Year
  Sex: Female

DRUGS (2)
  1. LYRICA [Suspect]
     Indication: HYPOAESTHESIA
     Dosage: 150MG, DAILY
     Route: 048
  2. LYRICA [Suspect]
     Dosage: 300MG, DAILY
     Route: 048

REACTIONS (2)
  - MUSCULAR WEAKNESS [None]
  - FALL [None]
